FAERS Safety Report 10190958 (Version 1)
Quarter: 2014Q2

REPORT INFORMATION
  Report Type: Report from Study
  Country: US (occurrence: US)
  Receive Date: 20140523
  Receipt Date: 20140523
  Transmission Date: 20141212
  Serious: Yes (Hospitalization)
  Sender: FDA-Public Use
  Company Number: US-JNJFOC-20140510990

PATIENT
  Age: 14 Year
  Sex: Male
  Weight: 65 kg

DRUGS (14)
  1. REMICADE [Suspect]
     Indication: CROHN^S DISEASE
     Route: 042
     Dates: start: 20130823
  2. REMICADE [Suspect]
     Indication: CROHN^S DISEASE
     Route: 042
     Dates: start: 20100323
  3. HUMIRA [Concomitant]
     Route: 065
     Dates: start: 20100628
  4. CIMZIA [Concomitant]
     Route: 065
     Dates: start: 20101002
  5. METHOTREXATE [Concomitant]
     Route: 065
  6. VERAPAMIL [Concomitant]
     Route: 065
  7. CALCIUM [Concomitant]
     Route: 065
  8. AMITRIPTYLINE [Concomitant]
     Route: 065
  9. CHOLECALCIFEROL [Concomitant]
     Route: 065
  10. FOLIC ACID [Concomitant]
     Route: 065
  11. MELATONIN [Concomitant]
     Route: 065
  12. ZOFRAN [Concomitant]
     Route: 065
  13. OMEPRAZOLE [Concomitant]
     Route: 065
  14. ZINC [Concomitant]
     Route: 065

REACTIONS (1)
  - Crohn^s disease [Recovered/Resolved]
